FAERS Safety Report 9379046 (Version 1)
Quarter: 2013Q3

REPORT INFORMATION
  Report Type: Spontaneous
  Country: FR (occurrence: FR)
  Receive Date: 20130702
  Receipt Date: 20130702
  Transmission Date: 20140515
  Serious: Yes (Hospitalization)
  Sender: FDA-Public Use
  Company Number: FR-BRISTOL-MYERS SQUIBB COMPANY-19064518

PATIENT
  Age: 66 Year
  Sex: Male

DRUGS (4)
  1. GLUCOPHAGE TABS 1000 MG [Suspect]
     Indication: TYPE 2 DIABETES MELLITUS
     Route: 048
     Dates: start: 20120925, end: 20121109
  2. OLMESARTAN MEDOXOMIL + HCTZ [Suspect]
     Indication: TYPE 2 DIABETES MELLITUS
     Dosage: 1DF:20 MG OF COOLMETEC
     Route: 048
     Dates: start: 20120925, end: 20121109
  3. DAFLON [Concomitant]
     Dosage: 1DF:DAFLON 500 MG TABS
     Route: 048
  4. SULODEXIDE [Concomitant]
     Indication: DIABETIC NEPHROPATHY
     Dosage: VESSEL
     Dates: start: 20121002

REACTIONS (1)
  - Rash maculo-papular [Recovering/Resolving]
